FAERS Safety Report 5035450-6 (Version None)
Quarter: 2006Q2

REPORT INFORMATION
  Report Type: 
  Country: None (occurrence: None)
  Receive Date: 20060627
  Receipt Date: 20060522
  Transmission Date: 20061013
  Serious: Yes (Death)
  Sender: FDA-Public Use
  Company Number: US-BRISTOL-MYERS SQUIBB COMPANY-13384888

PATIENT
  Age: 90 Year
  Sex: Female

DRUGS (1)
  1. MEGACE [Suspect]
     Route: 048
     Dates: start: 20060301

REACTIONS (1)
  - PANCREATIC CARCINOMA [None]
